FAERS Safety Report 4357051-5 (Version None)
Quarter: 2004Q2

REPORT INFORMATION
  Report Type: 
  Country: None (occurrence: None)
  Receive Date: 20040512
  Receipt Date: 20040430
  Transmission Date: 20050107
  Serious: Yes (Hospitalization)
  Sender: FDA-Public Use
  Company Number: IT-GLAXOSMITHKLINE-B0331729A

PATIENT
  Age: 62 Year
  Sex: Female

DRUGS (3)
  1. CEFTAZIDIME SODIUM [Suspect]
     Indication: PROPHYLAXIS
     Dosage: 1G PER DAY
     Route: 048
     Dates: start: 20040419, end: 20040422
  2. ENOXAPARIN SODIUM [Concomitant]
  3. LACTITOL [Concomitant]
     Route: 048

REACTIONS (2)
  - FACE OEDEMA [None]
  - HYPERAEMIA [None]
